FAERS Safety Report 12989654 (Version 2)
Quarter: 2016Q4

REPORT INFORMATION
  Report Type: Report from Study
  Country: DE (occurrence: DE)
  Receive Date: 20161201
  Receipt Date: 20161214
  Transmission Date: 20170207
  Serious: Yes (Death, Life-Threatening, Hospitalization, Other)
  Sender: FDA-Public Use
  Company Number: DE-BRISTOL-MYERS SQUIBB COMPANY-BMS-2016-101019

PATIENT
  Age: 66 Year
  Sex: Female

DRUGS (11)
  1. SYMBICORT [Concomitant]
     Active Substance: BUDESONIDE\FORMOTEROL FUMARATE DIHYDRATE
     Indication: LUNG DISORDER
     Dosage: UNK
     Route: 065
  2. DEKRISTOL [Concomitant]
     Active Substance: CHOLECALCIFEROL
     Indication: PROPHYLAXIS
     Dosage: UNK
     Route: 065
  3. METHOTREXATE (METHOTREXATE SODIUM) [Concomitant]
     Active Substance: METHOTREXATE SODIUM
     Indication: MALIGNANT NEOPLASM PROGRESSION
     Dosage: UNK
     Route: 065
  4. SIMVASTATIN. [Concomitant]
     Active Substance: SIMVASTATIN
     Indication: MALIGNANT NEOPLASM PROGRESSION
     Dosage: UNK
     Route: 065
  5. SPIRIVA [Concomitant]
     Active Substance: TIOTROPIUM BROMIDE MONOHYDRATE
     Indication: LUNG DISORDER
     Route: 065
  6. ASPIRIN. [Concomitant]
     Active Substance: ASPIRIN
     Indication: CEREBROVASCULAR DISORDER
     Dosage: UNK
     Route: 065
  7. MORPHIN                            /00036302/ [Concomitant]
     Indication: PRODUCT USED FOR UNKNOWN INDICATION
     Dosage: 10 MG, UNK
     Route: 065
     Dates: start: 20161103, end: 20161105
  8. NIVOLUMAB [Suspect]
     Active Substance: NIVOLUMAB
     Indication: NON-SMALL CELL LUNG CANCER
     Dosage: 3 MG/KG, Q2WK
     Route: 042
     Dates: start: 20161020, end: 20161117
  9. METOPROLOL. [Concomitant]
     Active Substance: METOPROLOL
     Indication: CEREBROVASCULAR DISORDER
     Dosage: UNK
     Route: 065
  10. FOLSAN [Concomitant]
     Active Substance: FOLIC ACID
     Indication: MALIGNANT NEOPLASM PROGRESSION
     Dosage: UNK
     Route: 065
  11. NOVAMINSULFON [Concomitant]
     Active Substance: METAMIZOLE
     Indication: PRODUCT USED FOR UNKNOWN INDICATION
     Dosage: 3 UNK, UNK
     Route: 065
     Dates: start: 20161106

REACTIONS (2)
  - Malignant neoplasm progression [Fatal]
  - Acute abdomen [Fatal]

NARRATIVE: CASE EVENT DATE: 20161121
